FAERS Safety Report 8171649-8 (Version None)
Quarter: 2012Q1

REPORT INFORMATION
  Report Type: 
  Country: None (occurrence: None)
  Receive Date: 20120228
  Receipt Date: 20120221
  Transmission Date: 20120608
  Serious: Yes (Other)
  Sender: FDA-Public Use
  Company Number: US-BAYER-2011-044824

PATIENT
  Age: 25 Year
  Sex: Female
  Weight: 65.306 kg

DRUGS (6)
  1. PHENERGAN [Concomitant]
     Dosage: UNK
     Dates: start: 20081111
  2. YAZ [Suspect]
     Indication: PREMENSTRUAL SYNDROME
  3. PHENERGAN [Concomitant]
     Dosage: UNK
     Dates: start: 20090728
  4. PROTONIX [Concomitant]
     Dosage: 40 MG, UNK
     Dates: start: 20090726
  5. YAZ [Suspect]
     Indication: CONTRACEPTION
     Dosage: UNK
     Route: 048
     Dates: start: 20080401, end: 20090901
  6. AMITIZA [Concomitant]
     Dosage: UNK
     Dates: start: 20090726

REACTIONS (9)
  - INJURY [None]
  - ABDOMINAL PAIN [None]
  - CONSTIPATION [None]
  - VOMITING [None]
  - GALLBLADDER CHOLESTEROLOSIS [None]
  - NAUSEA [None]
  - CHOLECYSTITIS CHRONIC [None]
  - HEPATOBILIARY SCAN ABNORMAL [None]
  - FATIGUE [None]
